FAERS Safety Report 15924455 (Version 2)
Quarter: 2019Q1

REPORT INFORMATION
  Report Type: Spontaneous
  Country: FR (occurrence: FR)
  Receive Date: 20190206
  Receipt Date: 20190306
  Transmission Date: 20190417
  Serious: Yes (Hospitalization, Disabling, Other)
  Sender: FDA-Public Use
  Company Number: FR-BRISTOL-MYERS SQUIBB COMPANY-BMS-2018-113716

PATIENT
  Age: 56 Year
  Sex: Male
  Weight: 93 kg

DRUGS (1)
  1. ELIQUIS [Suspect]
     Active Substance: APIXABAN
     Indication: CEREBROVASCULAR ACCIDENT PROPHYLAXIS
     Dosage: 5 MG, BID
     Route: 048
     Dates: start: 20160610, end: 20170201

REACTIONS (7)
  - Spinal cord haematoma [Not Recovered/Not Resolved]
  - Fall [Unknown]
  - Genital lesion [Unknown]
  - Paraplegia [Unknown]
  - Haemorrhage urinary tract [Unknown]
  - Overdose [Not Recovered/Not Resolved]
  - Arthralgia [Unknown]

NARRATIVE: CASE EVENT DATE: 20170129
